FAERS Safety Report 6688354-7 (Version None)
Quarter: 2010Q2

REPORT INFORMATION
  Report Type: 
  Country: None (occurrence: None)
  Receive Date: 20100420
  Receipt Date: 20100409
  Transmission Date: 20101027
  Serious: Yes (Hospitalization)
  Sender: FDA-Public Use
  Company Number: PHHY2010DE22225

PATIENT
  Age: 73 Year
  Sex: Male

DRUGS (1)
  1. DICLOFENAC [Suspect]
     Indication: ARTHRALGIA
     Dosage: UNK
     Dates: start: 20070101, end: 20070101

REACTIONS (5)
  - BLISTER [None]
  - HAEMATOMA [None]
  - POOR PERIPHERAL CIRCULATION [None]
  - RASH MACULAR [None]
  - SKIN ULCER [None]
